FAERS Safety Report 4815944-6 (Version None)
Quarter: 2005Q4

REPORT INFORMATION
  Report Type: 
  Country: None (occurrence: None)
  Receive Date: 20051031
  Receipt Date: 20050812
  Transmission Date: 20060501
  Serious: Yes (Disabling)
  Sender: FDA-Public Use
  Company Number: JP-ABBOTT-05P-087-0308413-00

PATIENT
  Age: 60 Year
  Sex: Female

DRUGS (1)
  1. CLARITHROMYCIN [Suspect]
     Indication: UPPER RESPIRATORY TRACT INFLAMMATION
     Route: 048
     Dates: start: 20050527, end: 20050531

REACTIONS (3)
  - ANOSMIA [None]
  - DYSGEUSIA [None]
  - VERTIGO [None]
